FAERS Safety Report 5385373-8 (Version None)
Quarter: 2007Q3

REPORT INFORMATION
  Report Type: 
  Country: None (occurrence: None)
  Receive Date: 20070712
  Receipt Date: 20070703
  Transmission Date: 20080115
  Serious: Yes (Hospitalization)
  Sender: FDA-Public Use
  Company Number: AT-ROCHE-438187

PATIENT
  Age: 65 Year
  Sex: Female
  Weight: 69 kg

DRUGS (12)
  1. CAPECITABINE [Suspect]
     Dosage: 2 TIMES PER 1 DAY, FOR 14 DAYS OUT OF EACH 3 WEEK CYCLE.
     Route: 048
     Dates: start: 20050909
  2. CAPECITABINE [Suspect]
     Dosage: 2 TIMES PER 1 DAY, FOR 14 DAYS OUT OF EACH 3 WEEK CYCLE.
     Route: 048
     Dates: start: 20051223
  3. BEVACIZUMAB [Suspect]
     Dosage: FORM REPORTED AS INFUSION.
     Route: 042
     Dates: start: 20050909, end: 20060224
  4. OXALIPLATIN [Suspect]
     Dosage: FORM REPORTED AS INFUSION.
     Route: 042
     Dates: start: 20050909
  5. OXALIPLATIN [Suspect]
     Route: 042
     Dates: start: 20051111
  6. CONCOR [Concomitant]
     Dates: start: 20050811
  7. COZAAR [Concomitant]
     Dates: start: 20050811
  8. LOVENOX [Concomitant]
     Route: 058
     Dates: start: 20051114
  9. SIMVASTATIN [Concomitant]
     Dates: start: 20050811
  10. PARIET [Concomitant]
     Dates: start: 20050811
  11. METFORMIN [Concomitant]
     Dates: start: 20050811
  12. LOSARTAN POTASSIUM [Concomitant]
     Dates: start: 20050901

REACTIONS (1)
  - PALMAR-PLANTAR ERYTHRODYSAESTHESIA SYNDROME [None]
